FAERS Safety Report 20187065 (Version 1)
Quarter: 2021Q4

REPORT INFORMATION
  Report Type: Spontaneous
  Country: CA (occurrence: CA)
  Receive Date: 20211215
  Receipt Date: 20211215
  Transmission Date: 20220303
  Serious: Yes (Hospitalization, Other)
  Sender: FDA-Public Use
  Company Number: CA-GLAXOSMITHKLINE-CACH2021AMR089765

PATIENT
  Age: 17 Year
  Sex: Male
  Weight: 75 kg

DRUGS (2)
  1. IBUPROFEN [Suspect]
     Active Substance: IBUPROFEN
     Indication: Ligament sprain
     Dosage: 400 MG, BID
     Route: 048
  2. UNKNOWN COVID VACCINE [Concomitant]
     Indication: Product used for unknown indication
     Dosage: UNK

REACTIONS (6)
  - Acute kidney injury [Unknown]
  - Abdominal pain [Unknown]
  - Hypertension [Unknown]
  - Polyuria [Unknown]
  - Tubulointerstitial nephritis [Unknown]
  - Weight decreased [Unknown]
